FAERS Safety Report 9051111 (Version 1)
Quarter: 2013Q1

REPORT INFORMATION
  Report Type: Spontaneous
  Country: US (occurrence: US)
  Receive Date: 20130206
  Receipt Date: 20130206
  Transmission Date: 20140127
  Serious: Yes (Other)
  Sender: FDA-Public Use
  Company Number: US-PFIZER INC-2013044262

PATIENT
  Age: 65 Year
  Sex: Female

DRUGS (4)
  1. MORPHINE SULFATE [Suspect]
     Dosage: UNK
     Route: 065
  2. OXYCONTIN [Suspect]
     Dosage: 160 MG, 2X/DAY
     Route: 048
  3. KLONOPIN [Suspect]
     Dosage: UNK
     Route: 065
  4. DILAUDID [Suspect]
     Dosage: UNK
     Route: 065

REACTIONS (1)
  - Drug abuse [Unknown]
